FAERS Safety Report 5195660-4 (Version None)
Quarter: 2006Q4

REPORT INFORMATION
  Report Type: 
  Country: None (occurrence: None)
  Receive Date: 20061222
  Receipt Date: 20061222
  Transmission Date: 20070319
  Serious: Yes (Hospitalization)
  Sender: FDA-Public Use
  Company Number: None

PATIENT
  Age: 52 Year
  Sex: Female
  Weight: 53.0709 kg

DRUGS (4)
  1. CETUXIMAB [Suspect]
     Indication: BREAST CANCER METASTATIC
     Dosage: 400MG WEEKLY IV
     Route: 042
     Dates: start: 20061211
  2. CARBOPLATIN [Suspect]
     Dosage: 270 MG WEEKLY IV
     Route: 042
     Dates: start: 20061211
  3. DURAGESIC-100 [Concomitant]
  4. MORPHINE [Concomitant]

REACTIONS (2)
  - ASPIRATION PLEURAL CAVITY [None]
  - DYSPNOEA [None]
